FAERS Safety Report 18239065 (Version 1)
Quarter: 2020Q3

REPORT INFORMATION
  Report Type: Spontaneous
  Country: US (occurrence: US)
  Receive Date: 20200907
  Receipt Date: 20200907
  Transmission Date: 20201103
  Serious: Yes (Death, Other)
  Sender: FDA-Public Use
  Company Number: US-VERO BIOTECH-2089464

PATIENT
  Age: 66 Year
  Sex: Male

DRUGS (1)
  1. GENOSYL [Suspect]
     Active Substance: NITRIC OXIDE
     Indication: COVID-19
     Route: 055
     Dates: start: 20200724

REACTIONS (6)
  - Cardiac arrest [Fatal]
  - Drug level fluctuating [Unknown]
  - Oxygen saturation decreased [Recovered/Resolved]
  - Haemodialysis [Unknown]
  - Underdose [Unknown]
  - Irregular breathing [Unknown]

NARRATIVE: CASE EVENT DATE: 20200807
